FAERS Safety Report 7334579-7 (Version None)
Quarter: 2011Q1

REPORT INFORMATION
  Report Type: 
  Country: None (occurrence: None)
  Receive Date: 20110307
  Receipt Date: 20101005
  Transmission Date: 20110831
  Serious: No
  Sender: FDA-Public Use
  Company Number: A0885033A

PATIENT
  Sex: Female

DRUGS (3)
  1. REQUIP [Suspect]
     Indication: PARKINSON'S DISEASE
     Dosage: .25MG PER DAY
     Route: 048
     Dates: start: 20100901, end: 20100901
  2. WELLBUTRIN SR [Concomitant]
  3. OMEPRAZOLE [Concomitant]

REACTIONS (1)
  - FATIGUE [None]
